FAERS Safety Report 9198037 (Version 2)
Quarter: 2013Q2

REPORT INFORMATION
  Report Type: Spontaneous
  Country: AU (occurrence: AU)
  Receive Date: 20130328
  Receipt Date: 20130510
  Transmission Date: 20140414
  Serious: Yes (Life-Threatening, Hospitalization, Other)
  Sender: FDA-Public Use
  Company Number: AU-B.I. PHARMACEUTICALS,INC./RIDGEFIELD-2013-AU-00369AU

PATIENT
  Age: 81 Year
  Sex: Female
  Weight: 70 kg

DRUGS (7)
  1. PRADAXA [Suspect]
     Indication: ATRIAL FIBRILLATION
     Dosage: 220 MG
     Dates: start: 20110722, end: 20130211
  2. DIGOXIN [Concomitant]
  3. METOPROLOL [Concomitant]
     Dosage: 100 MG
  4. LASIX [Concomitant]
     Dosage: 40 MG
  5. ACTONEL [Concomitant]
     Dosage: 5 MG
  6. PARIET EC [Concomitant]
     Dosage: 20 MG
  7. MURELAX [Concomitant]
     Dosage: 15 MG

REACTIONS (2)
  - Pulmonary embolism [Not Recovered/Not Resolved]
  - Ovarian cyst [Recovered/Resolved]
